FAERS Safety Report 11409787 (Version 1)
Quarter: 2015Q3

REPORT INFORMATION
  Report Type: Spontaneous
  Country: US (occurrence: US)
  Receive Date: 20150824
  Receipt Date: 20150824
  Transmission Date: 20151125
  Serious: Yes (Hospitalization, Other)
  Sender: FDA-Public Use
  Company Number: US-ACTAVIS-2015-17355

PATIENT
  Age: 35 Year
  Sex: Male

DRUGS (5)
  1. PREDNISONE (WATSON LABORATORIES) [Suspect]
     Active Substance: PREDNISONE
     Indication: PEMPHIGUS
     Dosage: 80 MG, DAILY
     Route: 065
  2. METHYLPREDNISOLONE ACETATE (WATSON LABORATORIES) [Suspect]
     Active Substance: METHYLPREDNISOLONE ACETATE
     Indication: PEMPHIGUS
     Dosage: 120 MG, Q8H
     Route: 042
  3. MYCOPHENOLATE MOFETIL (UNKNOWN) [Suspect]
     Active Substance: MYCOPHENOLATE MOFETIL
     Indication: PEMPHIGUS
     Dosage: 500 MG, DAILY
     Route: 065
  4. PREDNISONE (WATSON LABORATORIES) [Suspect]
     Active Substance: PREDNISONE
     Dosage: UNK
     Route: 065
  5. MYCOPHENOLATE MOFETIL (UNKNOWN) [Suspect]
     Active Substance: MYCOPHENOLATE MOFETIL
     Dosage: 1000 MG, DAILY
     Route: 065

REACTIONS (1)
  - Herpes oesophagitis [Recovered/Resolved]
